FAERS Safety Report 6980070-7 (Version None)
Quarter: 2010Q3

REPORT INFORMATION
  Report Type: 
  Country: None (occurrence: None)
  Receive Date: 20100909
  Receipt Date: 20100823
  Transmission Date: 20110219
  Serious: Yes (Hospitalization, Other)
  Sender: FDA-Public Use
  Company Number: 20100417

PATIENT
  Age: 65 Year
  Sex: Female

DRUGS (5)
  1. METHYLENE BLUE INJECTION, USP (0310-10)(METHYLENE BLUE) 10 MG/ML [Suspect]
     Indication: PARATHYROIDECTOMY
     Dosage: 200 MG (1.75 MG/KG), INTRAVENOUS DRIP
     Route: 041
  2. FENTANYL CITRATE [Concomitant]
  3. ROCURONIUM BROMIDE [Concomitant]
  4. MIDAZOLAM HCL [Concomitant]
  5. PROPOFOL [Concomitant]

REACTIONS (6)
  - AGITATION [None]
  - APHASIA [None]
  - BLOOD PRESSURE SYSTOLIC INCREASED [None]
  - CONFUSIONAL STATE [None]
  - RESTLESSNESS [None]
  - UNRESPONSIVE TO STIMULI [None]
